FAERS Safety Report 19656320 (Version 2)
Quarter: 2022Q1

REPORT INFORMATION
  Report Type: Spontaneous
  Country: FR (occurrence: FR)
  Receive Date: 20210804
  Receipt Date: 20220304
  Transmission Date: 20220423
  Serious: Yes (Hospitalization)
  Sender: FDA-Public Use
  Company Number: None

PATIENT
  Age: 74 Year
  Sex: Female
  Weight: 95 kg

DRUGS (10)
  1. FENOFIBRATE [Suspect]
     Active Substance: FENOFIBRATE
     Indication: Hypercholesterolaemia
     Dosage: 300 MG, THERAPY START DATE: ASKU
     Route: 048
     Dates: end: 20210603
  2. ESOMEPRAZOLE [Suspect]
     Active Substance: ESOMEPRAZOLE
     Indication: Dyspepsia
     Dosage: 1 DF; INEXIUM 20 MG, GASTRO-RESISTANT TABLET
     Route: 048
     Dates: start: 202011, end: 20210603
  3. ENALAPRIL MALEATE [Suspect]
     Active Substance: ENALAPRIL MALEATE
     Indication: Hypertension
     Dosage: 1 DF, THERAPY START DATE: ASKU; RENITEC 20 MG, SCORED TABLET
     Route: 048
     Dates: end: 20210603
  4. FUROSEMIDE [Suspect]
     Active Substance: FUROSEMIDE
     Indication: Hypertension
     Dosage: 1 DF, THERAPY START DATE: ASKU; LASILIX 40 MG, SCORED TABLET
     Route: 048
     Dates: end: 20210603
  5. CHOLECALCIFEROL [Concomitant]
     Active Substance: CHOLECALCIFEROL
     Dosage: 1 DF, THERAPY START DATE: ASKU
     Route: 048
  6. LATANOPROST [Concomitant]
     Active Substance: LATANOPROST
     Dosage: 1 GTT, THERAPY START DATE: ASKU; MONOPROST 50 MICROGRAMS/ML, EYE DROPS IN SOLUTION IN A SINGLE-DOSE
     Route: 047
  7. CORDARONE [Concomitant]
     Active Substance: AMIODARONE HYDROCHLORIDE
     Dosage: 1 DF
     Route: 048
     Dates: start: 202011
  8. DOLIPRANE [Concomitant]
     Active Substance: ACETAMINOPHEN
     Dosage: 1 G, THERAPY START AND END DATE: ASKU
     Route: 048
  9. SYMBICORT [Concomitant]
     Active Substance: BUDESONIDE\FORMOTEROL FUMARATE DIHYDRATE
     Dosage: 2 DF, THERAPY START DATE: ASKU; RAPIHALER
     Route: 055
  10. POTASSIUM CHLORIDE [Concomitant]
     Active Substance: POTASSIUM CHLORIDE
     Dosage: 600 MG, THERAPY START DATE: ASKU; DIFFU K, CAPSULE
     Route: 048
     Dates: end: 20210603

REACTIONS (1)
  - Renal tubular necrosis [Recovered/Resolved with Sequelae]

NARRATIVE: CASE EVENT DATE: 20210601
